FAERS Safety Report 7261515-4 (Version None)
Quarter: 2011Q1

REPORT INFORMATION
  Report Type: 
  Country: None (occurrence: None)
  Receive Date: 20110130
  Receipt Date: 20100930
  Transmission Date: 20110831
  Serious: No
  Sender: FDA-Public Use
  Company Number: US-ABBOTT-10P-163-0675159-00

PATIENT
  Age: 55 Year
  Sex: Female

DRUGS (19)
  1. DIAZIDE [Concomitant]
     Indication: PRODUCT USED FOR UNKNOWN INDICATION
     Dosage: 37.5/24
  2. PREDNISONE [Concomitant]
     Indication: PRODUCT USED FOR UNKNOWN INDICATION
     Dosage: DECREASED TO 5MG
  3. SIMVASTATIN [Concomitant]
     Indication: BLOOD CHOLESTEROL INCREASED
  4. GEODON [Concomitant]
     Indication: BIPOLAR DISORDER
  5. LUTEIN [Concomitant]
     Indication: GLAUCOMA
  6. LOTREL [Concomitant]
     Indication: HYPERTENSION
     Dosage: 5/20
  7. HUMIRA [Suspect]
     Indication: CROHN'S DISEASE
     Dates: start: 20100901
  8. VENTOLIN [Concomitant]
     Indication: ASTHMA
  9. NIACIN [Concomitant]
     Indication: PRODUCT USED FOR UNKNOWN INDICATION
  10. VALTREX [Concomitant]
     Indication: HERPES VIRUS INFECTION
  11. PRILOSEC [Concomitant]
     Indication: PRODUCT USED FOR UNKNOWN INDICATION
  12. ASACOL [Concomitant]
     Indication: PRODUCT USED FOR UNKNOWN INDICATION
     Dosage: 3-4 TABLETS TID
  13. ACTOS PLUS METFORMIN [Concomitant]
     Indication: PRODUCT USED FOR UNKNOWN INDICATION
     Dosage: 15MG/850MG
  14. LAMISIL [Concomitant]
     Indication: TINEA PEDIS
  15. MULTI-VITAMINS [Concomitant]
     Indication: PRODUCT USED FOR UNKNOWN INDICATION
  16. ZYRTEC [Concomitant]
     Indication: SEASONAL ALLERGY
  17. GLUCOSAMINE [Concomitant]
     Indication: PRODUCT USED FOR UNKNOWN INDICATION
  18. CO Q-10 [Concomitant]
     Indication: PRODUCT USED FOR UNKNOWN INDICATION
  19. LUTEIN [Concomitant]
     Indication: PROPHYLAXIS

REACTIONS (2)
  - URTICARIA [None]
  - PRURITUS [None]
